FAERS Safety Report 17043446 (Version 1)
Quarter: 2019Q4

REPORT INFORMATION
  Report Type: Spontaneous
  Country: US (occurrence: US)
  Receive Date: 20191118
  Receipt Date: 20191118
  Transmission Date: 20200122
  Serious: No
  Sender: FDA-Public Use
  Company Number: US-THERAPEUTICSMD-2019TMD03226

PATIENT
  Sex: Female
  Weight: 67.12 kg

DRUGS (4)
  1. TRAZODONE [Concomitant]
     Active Substance: TRAZODONE HYDROCHLORIDE
     Dosage: UNK, AS NEEDED
  2. BIJUVA [Suspect]
     Active Substance: ESTRADIOL\PROGESTERONE
     Indication: PROGESTERONE DECREASED
     Dosage: 1 CAPSULES, 1X/DAY, EVERY NIGHT
     Dates: start: 201907, end: 201909
  3. TOPAMAX [Concomitant]
     Active Substance: TOPIRAMATE
  4. BIJUVA [Suspect]
     Active Substance: ESTRADIOL\PROGESTERONE
     Indication: MENOPAUSE
     Dosage: 1 CAPSULES, 1X/DAY, EVERY NIGHT
     Dates: start: 201905, end: 2019

REACTIONS (2)
  - Breast tenderness [Recovered/Resolved]
  - Headache [Recovered/Resolved]

NARRATIVE: CASE EVENT DATE: 2019
